FAERS Safety Report 14656395 (Version 2)
Quarter: 2018Q1

REPORT INFORMATION
  Report Type: Spontaneous
  Country: DE (occurrence: DE)
  Receive Date: 20180319
  Receipt Date: 20180322
  Transmission Date: 20180509
  Serious: Yes (Death, Hospitalization)
  Sender: FDA-Public Use
  Company Number: DE-TEVA-2018-DE-868887

PATIENT
  Age: 48 Year
  Sex: Female

DRUGS (5)
  1. OXALIPLATIN. [Suspect]
     Active Substance: OXALIPLATIN
     Indication: CARCINOID TUMOUR OF THE APPENDIX
     Route: 042
  2. CALCIUMFOLINAT [Suspect]
     Active Substance: LEUCOVORIN CALCIUM
     Indication: CARCINOID TUMOUR OF THE APPENDIX
     Dosage: 20MG/M2
     Route: 042
  3. 5-FLUOROURACIL [Suspect]
     Active Substance: FLUOROURACIL
     Indication: CARCINOID TUMOUR OF THE APPENDIX
     Dosage: 400MG/M2
     Route: 042
  4. 5-FLUOROURACIL [Suspect]
     Active Substance: FLUOROURACIL
     Route: 042
  5. OXALIPLATIN. [Suspect]
     Active Substance: OXALIPLATIN
     Dosage: INTRA-ABDOMINAL 300MG/M2
     Route: 050

REACTIONS (4)
  - Respiratory failure [Fatal]
  - Pulmonary hypertension [Fatal]
  - Interstitial lung disease [Fatal]
  - Right ventricular failure [Fatal]
